FAERS Safety Report 5105216-7 (Version None)
Quarter: 2006Q3

REPORT INFORMATION
  Report Type: 
  Country: None (occurrence: None)
  Receive Date: 20060911
  Receipt Date: 20060829
  Transmission Date: 20061208
  Serious: Yes (Hospitalization)
  Sender: FDA-Public Use
  Company Number: 229268

PATIENT
  Age: 6 Year
  Sex: Male

DRUGS (1)
  1. NUTROPIN AQ [Suspect]
     Indication: HYPOPITUITARISM
     Dosage: QD, SUBCUTANEOUS
     Route: 058
     Dates: start: 20010801

REACTIONS (2)
  - GASTROINTESTINAL PAIN [None]
  - LYMPHADENITIS [None]
